FAERS Safety Report 8831204 (Version 1)
Quarter: 2012Q4

REPORT INFORMATION
  Report Type: Spontaneous
  Country: US (occurrence: None)
  Receive Date: 20121005
  Receipt Date: 20121005
  Transmission Date: 20130627
  Serious: Yes (Life-Threatening, Hospitalization)
  Sender: FDA-Public Use
  Company Number: None

PATIENT
  Age: 57 Year
  Sex: Female
  Weight: 63.5 kg

DRUGS (1)
  1. ALPRAZOLAM [Suspect]
     Indication: ANXIETY
     Dosage: 1
     Route: 048
     Dates: start: 20120604, end: 20120920

REACTIONS (9)
  - Decreased appetite [None]
  - Constipation [None]
  - Gastrooesophageal reflux disease [None]
  - Vomiting [None]
  - Weight decreased [None]
  - Headache [None]
  - Insomnia [None]
  - Depression [None]
  - Suicidal ideation [None]
